FAERS Safety Report 6250267-2 (Version None)
Quarter: 2009Q2

REPORT INFORMATION
  Report Type: 
  Country: None (occurrence: None)
  Receive Date: 20090626
  Receipt Date: 20090626
  Transmission Date: 20091009
  Serious: No
  Sender: FDA-Public Use
  Company Number: None

PATIENT
  Age: 56 Year
  Sex: Male
  Weight: 81.6475 kg

DRUGS (2)
  1. NORCO GENERIC 10/325 RANBAXY [Suspect]
     Indication: CARDIAC DISORDER
     Dosage: 1      6 HOURS PO 2 YEARS APROX
     Route: 048
  2. NORCO GENERIC 10/325 RANBAXY [Suspect]
     Indication: MIGRAINE
     Dosage: 1      6 HOURS PO 2 YEARS APROX
     Route: 048

REACTIONS (2)
  - DRUG INEFFECTIVE [None]
  - PRODUCT SUBSTITUTION ISSUE [None]
